FAERS Safety Report 23401408 (Version 1)
Quarter: 2024Q1

REPORT INFORMATION
  Report Type: Spontaneous
  Country: US (occurrence: US)
  Receive Date: 20240115
  Receipt Date: 20240115
  Transmission Date: 20240410
  Serious: No
  Sender: FDA-Public Use
  Company Number: US-ABBVIE-5586566

PATIENT
  Sex: Female

DRUGS (1)
  1. VANIQA [Suspect]
     Active Substance: EFLORNITHINE HYDROCHLORIDE
     Indication: Product used for unknown indication
     Dosage: STRENGTH 13.9 PERCENT
     Route: 061

REACTIONS (2)
  - Adverse drug reaction [Unknown]
  - Expired device used [Unknown]
